FAERS Safety Report 13515453 (Version 1)
Quarter: 2017Q2

REPORT INFORMATION
  Report Type: Spontaneous
  Country: US (occurrence: US)
  Receive Date: 20170504
  Receipt Date: 20170504
  Transmission Date: 20170830
  Serious: No
  Sender: FDA-Public Use
  Company Number: US-BAUSCH-BL-2017-004842

PATIENT
  Age: 56 Year
  Sex: Male

DRUGS (1)
  1. ZYCLARA [Suspect]
     Active Substance: IMIQUIMOD
     Indication: SOLAR LENTIGO
     Dosage: 1 APPLICATION ONCE NIGHTLY TO AFFECTED AREAS
     Route: 061
     Dates: start: 20170214, end: 20170216

REACTIONS (2)
  - Expired product administered [Unknown]
  - Application site ulcer [Recovering/Resolving]

NARRATIVE: CASE EVENT DATE: 20170214
